FAERS Safety Report 16904453 (Version 1)
Quarter: 2019Q4

REPORT INFORMATION
  Report Type: Spontaneous
  Country: US (occurrence: US)
  Receive Date: 20190819
  Receipt Date: 20190819
  Transmission Date: 20200122
  Serious: No
  Sender: FDA-Public Use
  Company Number: None

PATIENT

DRUGS (2)
  1. SODIUM BICARBONATE. [Suspect]
     Active Substance: SODIUM BICARBONATE
  2. SODIUM BICARBONATE  INFANT SODIUM BICARBONATE [Suspect]
     Active Substance: SODIUM BICARBONATE

REACTIONS (2)
  - Product packaging confusion [None]
  - Wrong product stored [None]
